FAERS Safety Report 5598878-1 (Version None)
Quarter: 2008Q1

REPORT INFORMATION
  Report Type: 
  Country: None (occurrence: None)
  Receive Date: 20080122
  Receipt Date: 20080117
  Transmission Date: 20080703
  Serious: Yes (Hospitalization, Other)
  Sender: FDA-Public Use
  Company Number: US-BRISTOL-MYERS SQUIBB COMPANY-13963046

PATIENT
  Age: 29 Year
  Sex: Female

DRUGS (11)
  1. DASATINIB [Suspect]
     Indication: BREAST CANCER
     Dosage: NO. OF COURSES: 14
     Route: 048
     Dates: start: 20070927, end: 20071010
  2. FLEXERIL [Concomitant]
     Indication: BREAST CANCER
     Dates: start: 20070928
  3. POTASSIUM CHLORIDE [Concomitant]
  4. K-DUR 10 [Concomitant]
  5. DARVOCET [Concomitant]
  6. LASIX [Concomitant]
  7. LOMOTIL [Concomitant]
  8. ZOLOFT [Concomitant]
  9. XANAX [Concomitant]
  10. RESTORIL [Concomitant]
  11. RADIATION THERAPY [Concomitant]
     Dates: start: 20071021, end: 20071114

REACTIONS (6)
  - DEHYDRATION [None]
  - DIARRHOEA [None]
  - HEADACHE [None]
  - ORBITAL OEDEMA [None]
  - PNEUMONIA [None]
  - PYREXIA [None]
